FAERS Safety Report 25821967 (Version 3)
Quarter: 2025Q4

REPORT INFORMATION
  Report Type: Report from Study
  Country: US (occurrence: US)
  Receive Date: 20250919
  Receipt Date: 20251014
  Transmission Date: 20260117
  Serious: Yes (Death)
  Sender: AMGEN
  Company Number: US-AMGEN-USASP2025186107

PATIENT
  Age: 85 Year
  Sex: Male

DRUGS (2)
  1. ENBREL [Suspect]
     Active Substance: ETANERCEPT
     Indication: Product used for unknown indication
     Dosage: 50 MILLIGRAM, QWK
     Route: 058
  2. ENBREL [Suspect]
     Active Substance: ETANERCEPT
     Dosage: 50 MILLIGRAM, QWK
     Route: 058

REACTIONS (4)
  - Pulmonary fibrosis [Fatal]
  - Cardiopulmonary failure [Fatal]
  - Intentional product misuse [Recovered/Resolved]
  - Pain [Unknown]

NARRATIVE: CASE EVENT DATE: 20250101
